FAERS Safety Report 9128562 (Version 1)
Quarter: 2013Q1

REPORT INFORMATION
  Report Type: Report from Study
  Country: US (occurrence: US)
  Receive Date: 20130228
  Receipt Date: 20130228
  Transmission Date: 20140127
  Serious: No
  Sender: FDA-Public Use
  Company Number: US-ABBOTT-13P-163-1046628-00

PATIENT
  Age: 8 Year
  Sex: Female
  Weight: 27.24 kg

DRUGS (1)
  1. ANDROGEL 1.62% [Suspect]
     Indication: EXPOSURE VIA DIRECT CONTACT

REACTIONS (2)
  - Exposure via direct contact [Recovered/Resolved]
  - Rash pruritic [Recovered/Resolved]
